FAERS Safety Report 16995837 (Version 1)
Quarter: 2019Q4

REPORT INFORMATION
  Report Type: Spontaneous
  Country: US (occurrence: US)
  Receive Date: 20191105
  Receipt Date: 20191105
  Transmission Date: 20200122
  Serious: No
  Sender: FDA-Public Use
  Company Number: US-BIOGEN-2019BI00802981

PATIENT
  Age: 36 Year
  Sex: Female

DRUGS (1)
  1. TYSABRI [Suspect]
     Active Substance: NATALIZUMAB
     Indication: MULTIPLE SCLEROSIS
     Route: 042
     Dates: start: 20160205

REACTIONS (5)
  - Contusion [Unknown]
  - Loss of control of legs [Unknown]
  - Limb injury [Unknown]
  - Skin discolouration [Unknown]
  - Cystitis [Unknown]

NARRATIVE: CASE EVENT DATE: 20191023
